FAERS Safety Report 17526349 (Version 1)
Quarter: 2020Q1

REPORT INFORMATION
  Report Type: Spontaneous
  Country: US (occurrence: US)
  Receive Date: 20200310
  Receipt Date: 20200310
  Transmission Date: 20200409
  Serious: Yes (Other)
  Sender: FDA-Public Use
  Company Number: NVSC2020US053008

PATIENT

DRUGS (8)
  1. AFINITOR [Suspect]
     Active Substance: EVEROLIMUS
     Dosage: 10 MG, UNKNOWN
     Route: 065
     Dates: start: 201807, end: 201909
  2. LIPITOR [Suspect]
     Active Substance: ATORVASTATIN CALCIUM
     Indication: BLOOD CHOLESTEROL INCREASED
     Dosage: UNK
     Route: 065
     Dates: end: 201708
  3. AFINITOR [Suspect]
     Active Substance: EVEROLIMUS
     Dosage: 7.5 MG, UNKNOWN (THREE MONTHS LATER)
     Route: 065
  4. CARBOPLATIN. [Concomitant]
     Active Substance: CARBOPLATIN
     Indication: NEUROENDOCRINE TUMOUR
     Dosage: UNK (FOUR ROUNDS)
     Route: 042
  5. ETOPOSIDE. [Concomitant]
     Active Substance: ETOPOSIDE
     Indication: NEUROENDOCRINE TUMOUR
     Dosage: UNK
     Route: 042
  6. AFINITOR [Suspect]
     Active Substance: EVEROLIMUS
     Indication: NEUROENDOCRINE TUMOUR
     Dosage: 10 MG, UNKNOWN
     Route: 065
  7. CAPECITABINE. [Concomitant]
     Active Substance: CAPECITABINE
     Indication: NEUROENDOCRINE TUMOUR
     Dosage: 750 MG/M2, BID (PRESCRIBED AS 1-14TH Q 28 DAYS)
     Route: 065
  8. TEMODAR [Concomitant]
     Active Substance: TEMOZOLOMIDE
     Indication: NEUROENDOCRINE TUMOUR
     Dosage: 200 MG/M2, QD (PRESCRIBED AT NIGHT FROM DAY 10-15 Q 28 DAYS)
     Route: 065

REACTIONS (12)
  - Malignant neoplasm progression [Unknown]
  - Dyspnoea [Unknown]
  - Metastases to liver [Unknown]
  - Metastases to pancreas [Unknown]
  - Malaise [Unknown]
  - Pneumonitis [Unknown]
  - Metastases to bone [Unknown]
  - Fatigue [Unknown]
  - Neuroendocrine tumour [Unknown]
  - Metastases to spine [Unknown]
  - Metastases to central nervous system [Unknown]
  - Muscular weakness [Unknown]

NARRATIVE: CASE EVENT DATE: 201808
